FAERS Safety Report 9674094 (Version 3)
Quarter: 2014Q1

REPORT INFORMATION
  Report Type: Spontaneous
  Country: US (occurrence: US)
  Receive Date: 20131106
  Receipt Date: 20140102
  Transmission Date: 20141002
  Serious: No
  Sender: FDA-Public Use
  Company Number: US-AMGEN-USASP2013073536

PATIENT
  Age: 57 Year
  Sex: Female
  Weight: 75.28 kg

DRUGS (8)
  1. ENBREL [Suspect]
     Indication: RHEUMATOID ARTHRITIS
     Dosage: 50 MG, QWK
     Route: 065
     Dates: start: 20130911
  2. ENBREL [Suspect]
     Dosage: UNK
     Route: 065
  3. NAPROXEN [Concomitant]
     Dosage: 250 MG, UNK
  4. METHOTREXATE [Concomitant]
     Dosage: 2.5 MG, UNK
  5. VITAMIN D                          /00107901/ [Concomitant]
     Dosage: 1000 UNIT, UNK
  6. LEUCOVORIN CA [Concomitant]
     Dosage: 05 MG, UNK
  7. CALCIUM [Concomitant]
     Dosage: 500 UNK, UNK
     Route: 065
  8. VITAMIN B12                        /00056201/ [Concomitant]
     Dosage: 1000 UNK, UNK
     Route: 065

REACTIONS (11)
  - Increased appetite [Unknown]
  - Weight increased [Unknown]
  - Pain in extremity [Recovered/Resolved]
  - Local swelling [Recovered/Resolved]
  - Chondropathy [Recovered/Resolved]
  - Chest pain [Recovered/Resolved]
  - Injection site reaction [Not Recovered/Not Resolved]
  - Injection site pruritus [Not Recovered/Not Resolved]
  - Injection site erythema [Not Recovered/Not Resolved]
  - Injection site warmth [Not Recovered/Not Resolved]
  - Injection site pain [Not Recovered/Not Resolved]
